FAERS Safety Report 4367111-0 (Version None)
Quarter: 2004Q2

REPORT INFORMATION
  Report Type: 
  Country: None (occurrence: None)
  Receive Date: 20040528
  Receipt Date: 20040414
  Transmission Date: 20050107
  Serious: No
  Sender: FDA-Public Use
  Company Number: US-GLAXOSMITHKLINE-A0507194A

PATIENT
  Age: 39 Year
  Sex: Female
  Weight: 96.8 kg

DRUGS (5)
  1. WELLBUTRIN [Suspect]
     Indication: DRUG USE FOR UNKNOWN INDICATION
     Dosage: 300MG PER DAY
     Route: 048
     Dates: start: 20040408
  2. WELLBUTRIN [Suspect]
     Dosage: 150MG TWICE PER DAY
     Route: 048
     Dates: start: 20040408
  3. PRILOSEC [Concomitant]
     Dosage: 20MG PER DAY
     Route: 048
  4. PAXIL CR [Concomitant]
     Dosage: 3.75MG PER DAY
     Route: 048
  5. NASONEX [Concomitant]
     Dosage: 2SPR PER DAY

REACTIONS (2)
  - MEDICATION ERROR [None]
  - OVERDOSE [None]
